FAERS Safety Report 5475489-X (Version None)
Quarter: 2007Q3

REPORT INFORMATION
  Report Type: 
  Country: None (occurrence: None)
  Receive Date: 20070914
  Receipt Date: 20070523
  Transmission Date: 20080115
  Serious: Yes (Other)
  Sender: FDA-Public Use
  Company Number: 07-116

PATIENT
  Age: 76 Year
  Sex: Female
  Weight: 68.0396 kg

DRUGS (3)
  1. ALEVE [Suspect]
     Indication: MUSCULOSKELETAL PAIN
     Dosage: 220 MG, DAILY, ORAL
     Route: 048
     Dates: start: 20070516
  2. ZIAC [Concomitant]
  3. THYROID TAB [Concomitant]

REACTIONS (1)
  - DRUG HYPERSENSITIVITY [None]
